FAERS Safety Report 11512661 (Version 1)
Quarter: 2015Q3

REPORT INFORMATION
  Report Type: Spontaneous
  Country: US (occurrence: None)
  Receive Date: 20150915
  Receipt Date: 20150915
  Transmission Date: 20151125
  Serious: Yes (Disabling)
  Sender: FDA-Public Use
  Company Number: None

PATIENT
  Age: 52 Year
  Sex: Female
  Weight: 70.31 kg

DRUGS (3)
  1. CYMBALTA [Suspect]
     Active Substance: DULOXETINE HYDROCHLORIDE
     Indication: DEPRESSION
     Route: 048
  2. GABAPENTIN. [Concomitant]
     Active Substance: GABAPENTIN
  3. ONE A DAY SILVER VITAMINS [Concomitant]

REACTIONS (5)
  - Tendonitis [None]
  - Arthralgia [None]
  - Drug ineffective [None]
  - Mobility decreased [None]
  - Pain in extremity [None]

NARRATIVE: CASE EVENT DATE: 20150914
